FAERS Safety Report 25061998 (Version 2)
Quarter: 2025Q2

REPORT INFORMATION
  Report Type: Spontaneous
  Country: US (occurrence: US)
  Receive Date: 20250311
  Receipt Date: 20250402
  Transmission Date: 20250717
  Serious: Yes (Hospitalization)
  Sender: ROCHE
  Company Number: US-ROCHE-10000221945

PATIENT
  Sex: Male

DRUGS (2)
  1. HEMLIBRA [Suspect]
     Active Substance: EMICIZUMAB-KXWH
     Indication: Factor VIII deficiency
     Dosage: STRENGTH: 60MG/0.4ML?MAINTENANCE DOSE
     Route: 058
     Dates: start: 201911
  2. HEMOFIL M [Concomitant]
     Active Substance: ANTIHEMOPHILIC FACTOR HUMAN

REACTIONS (2)
  - Diabetic ketoacidosis [Unknown]
  - Diabetes mellitus [Unknown]
